FAERS Safety Report 9935481 (Version 1)
Quarter: 2014Q1

REPORT INFORMATION
  Report Type: Spontaneous
  Country: US (occurrence: US)
  Receive Date: 20140228
  Receipt Date: 20140228
  Transmission Date: 20141002
  Serious: No
  Sender: FDA-Public Use
  Company Number: US-PFIZER INC-2014054732

PATIENT
  Age: 62 Year
  Sex: Female
  Weight: 43.95 kg

DRUGS (3)
  1. IBUPROFEN [Suspect]
     Dosage: 600 MG, THREE TIMES A DAY
  2. PLAQUENIL [Concomitant]
     Dosage: 200 MG, UNK
  3. SALAGEN [Concomitant]
     Dosage: 5 MG, UNK

REACTIONS (2)
  - Overdose [Unknown]
  - Dyspnoea [Unknown]
